FAERS Safety Report 19083012 (Version 1)
Quarter: 2021Q1

REPORT INFORMATION
  Report Type: Spontaneous
  Country: US (occurrence: US)
  Receive Date: 20210331
  Receipt Date: 20210331
  Transmission Date: 20210420
  Serious: Yes (Hospitalization, Disabling, Other)
  Sender: FDA-Public Use
  Company Number: None

PATIENT
  Age: 47 Year
  Sex: Female
  Weight: 72.57 kg

DRUGS (3)
  1. CHEMOTHERAPY [Concomitant]
     Active Substance: UNSPECIFIED INGREDIENT
  2. DURISAN HAND SANITIZER [Suspect]
     Active Substance: BENZALKONIUM CHLORIDE
     Indication: COVID-19
     Dates: start: 202003, end: 202006
  3. RADIATION [Concomitant]
     Active Substance: RADIATION THERAPY

REACTIONS (3)
  - Application site pain [None]
  - Application site reaction [None]
  - Soft tissue sarcoma [None]
